FAERS Safety Report 5581363-0 (Version None)
Quarter: 2007Q4

REPORT INFORMATION
  Report Type: 
  Country: None (occurrence: None)
  Receive Date: 20071231
  Receipt Date: 20071218
  Transmission Date: 20080405
  Serious: Yes (Death)
  Sender: FDA-Public Use
  Company Number: 2007EN000305

PATIENT
  Age: 47 Year
  Sex: Female
  Weight: 86.1834 kg

DRUGS (6)
  1. OPANA ER [Suspect]
     Indication: FIBROMYALGIA
     Dosage: 20 MG;BID;
     Dates: start: 20070927, end: 20071128
  2. MEPERGAN [Concomitant]
  3. CYMBALTA [Concomitant]
  4. NEURONTIN [Concomitant]
  5. REQUIP [Concomitant]
  6. PRILOSEC /00661201/ [Concomitant]

REACTIONS (1)
  - DEATH [None]
